FAERS Safety Report 10471630 (Version 1)
Quarter: 2014Q3

REPORT INFORMATION
  Report Type: Spontaneous
  Country: BR (occurrence: BR)
  Receive Date: 20140923
  Receipt Date: 20140923
  Transmission Date: 20150326
  Serious: Yes (Other)
  Sender: FDA-Public Use
  Company Number: PHHY2014BR124021

PATIENT
  Age: 0 Day
  Sex: Female

DRUGS (1)
  1. TRILEPTAL [Suspect]
     Active Substance: OXCARBAZEPINE
     Dosage: FOETAL EXPOSURE VIA FATHER

REACTIONS (2)
  - Premature baby [Unknown]
  - Exposure via father [Unknown]

NARRATIVE: CASE EVENT DATE: 20120402
